FAERS Safety Report 5771963-7 (Version None)
Quarter: 2008Q2

REPORT INFORMATION
  Report Type: 
  Country: None (occurrence: None)
  Receive Date: 20080612
  Receipt Date: 20080612
  Transmission Date: 20081010
  Serious: Yes (Other)
  Sender: FDA-Public Use
  Company Number: None

PATIENT
  Age: 64 Year
  Sex: Female

DRUGS (1)
  1. DIOVAN [Suspect]
     Indication: HYPERTENSION
     Dosage: 1TAB DAILY PO
     Route: 048
     Dates: start: 20030601, end: 20080601

REACTIONS (4)
  - COUGH [None]
  - FATIGUE [None]
  - VOMITING [None]
  - WEIGHT INCREASED [None]
